FAERS Safety Report 17753967 (Version 7)
Quarter: 2020Q3

REPORT INFORMATION
  Report Type: Spontaneous
  Country: US (occurrence: US)
  Receive Date: 20200506
  Receipt Date: 20200720
  Transmission Date: 20201102
  Serious: Yes (Hospitalization)
  Sender: FDA-Public Use
  Company Number: US-ACTELION-A-US2020-204782

PATIENT
  Sex: Male
  Weight: 63.95 kg

DRUGS (4)
  1. VELETRI [Suspect]
     Active Substance: EPOPROSTENOL
     Dosage: 27 NG/KG, PER MIN
     Route: 042
  2. OPSUMIT [Suspect]
     Active Substance: MACITENTAN
     Indication: PULMONARY ARTERIAL HYPERTENSION
     Dosage: 10 MG, QD
     Route: 048
  3. VELETRI [Suspect]
     Active Substance: EPOPROSTENOL
     Indication: PULMONARY ARTERIAL HYPERTENSION
     Dosage: 25 NG/KG, PER MIN
     Route: 042
  4. VELETRI [Suspect]
     Active Substance: EPOPROSTENOL
     Dosage: 28 NG/KG, PER MIN
     Route: 042

REACTIONS (8)
  - Staphylococcal sepsis [Recovered/Resolved]
  - Catheter management [Recovered/Resolved]
  - Device dislocation [Unknown]
  - Catheter site infection [Unknown]
  - Device related bacteraemia [Recovered/Resolved]
  - Vascular device infection [Recovered/Resolved]
  - Catheter site irritation [Unknown]
  - Catheter site nodule [Unknown]
